FAERS Safety Report 15203451 (Version 1)
Quarter: 2018Q3

REPORT INFORMATION
  Report Type: Spontaneous
  Country: ES (occurrence: ES)
  Receive Date: 20180726
  Receipt Date: 20180726
  Transmission Date: 20181010
  Serious: Yes (Other)
  Sender: FDA-Public Use
  Company Number: ES-SA-2018SA183792

PATIENT
  Age: 70 Year
  Sex: Male

DRUGS (1)
  1. VANDETANIB. [Suspect]
     Active Substance: VANDETANIB
     Indication: MEDULLARY THYROID CANCER
     Dosage: 1?MONTH CYCLES

REACTIONS (5)
  - Conjunctivochalasis [Unknown]
  - Vision blurred [Unknown]
  - Lens dislocation [Unknown]
  - Cornea verticillata [Unknown]
  - Cataract nuclear [Unknown]

NARRATIVE: CASE EVENT DATE: 201606
